FAERS Safety Report 4390923-4 (Version None)
Quarter: 2004Q2

REPORT INFORMATION
  Report Type: 
  Country: None (occurrence: None)
  Receive Date: 20040630
  Receipt Date: 20040622
  Transmission Date: 20050107
  Serious: Yes (Hospitalization, Other)
  Sender: FDA-Public Use
  Company Number: 2004034717

PATIENT
  Age: 83 Year
  Sex: Female

DRUGS (7)
  1. NEURONTIN [Suspect]
     Indication: ILL-DEFINED DISORDER
     Dosage: 600 MG (300 MG, 2 IN 1 D), ORAL
     Route: 048
  2. BACTRIM [Suspect]
     Indication: ILL-DEFINED DISORDER
     Dates: end: 20040501
  3. LEVOTHYROXINE SODIUM [Concomitant]
  4. KETOROLAC (KETOROLAC) [Concomitant]
  5. DALTEPARIN (DALTEPARIN) [Concomitant]
  6. VICODIN [Concomitant]
  7. LOMOTIL [Concomitant]

REACTIONS (6)
  - BONE INFECTION [None]
  - LEUKOPENIA [None]
  - NEUTROPENIA [None]
  - OSTEOARTHRITIS [None]
  - OSTEOPOROSIS [None]
  - PROCEDURAL COMPLICATION [None]
